FAERS Safety Report 8010694-X (Version None)
Quarter: 2011Q4

REPORT INFORMATION
  Report Type: 
  Country: None (occurrence: None)
  Receive Date: 20111228
  Receipt Date: 20111221
  Transmission Date: 20120403
  Serious: Yes (Death)
  Sender: FDA-Public Use
  Company Number: TR-CELGENEUS-161-C5013-11122755

PATIENT
  Sex: Male

DRUGS (6)
  1. OMEPRAZOLE [Concomitant]
     Dosage: 40 MILLIGRAM
     Route: 048
  2. LENALIDOMIDE [Suspect]
     Dosage: 15 MILLIGRAM
     Route: 048
     Dates: start: 20110906
  3. SULFAMETOXAZOL/TRIMETHOPRIM [Concomitant]
     Route: 048
  4. LENALIDOMIDE [Suspect]
     Indication: CHRONIC LYMPHOCYTIC LEUKAEMIA
     Dosage: 10 MILLIGRAM
     Route: 048
     Dates: start: 20110801
  5. ACYCLOVIR [Concomitant]
     Dosage: 400 MILLIGRAM
     Route: 048
  6. DEXAMETHASONE [Concomitant]
     Indication: CHRONIC LYMPHOCYTIC LEUKAEMIA
     Dosage: 2.8571 MILLIGRAM
     Route: 048

REACTIONS (1)
  - CHRONIC LYMPHOCYTIC LEUKAEMIA [None]
